FAERS Safety Report 6786059-5 (Version None)
Quarter: 2010Q2

REPORT INFORMATION
  Report Type: 
  Country: None (occurrence: None)
  Receive Date: 20100623
  Receipt Date: 20100616
  Transmission Date: 20101027
  Serious: Yes (Hospitalization)
  Sender: FDA-Public Use
  Company Number: FR-ABBOTT-10P-056-0650347-00

PATIENT
  Sex: Male

DRUGS (27)
  1. LIPANTHYL [Suspect]
     Indication: DYSLIPIDAEMIA
     Route: 048
     Dates: start: 20090101, end: 20100413
  2. CITALOPRAM [Suspect]
     Indication: DEPRESSION
     Route: 048
     Dates: start: 20100410, end: 20100413
  3. PREVISCAN [Suspect]
     Indication: ATRIAL FIBRILLATION
     Route: 048
     Dates: start: 20090101, end: 20100113
  4. PREVISCAN [Suspect]
     Dates: start: 20100601
  5. PERINDOPRIL [Suspect]
     Indication: HYPERTENSION
     Route: 048
     Dates: start: 20090101, end: 20100408
  6. PERINDOPRIL [Suspect]
     Route: 065
     Dates: start: 20100601
  7. GLUCOPHAGE [Suspect]
     Indication: TYPE 2 DIABETES MELLITUS
     Route: 048
     Dates: start: 20090101, end: 20100407
  8. GLUCOPHAGE [Suspect]
     Route: 065
     Dates: start: 20100601
  9. TOPALGIC [Suspect]
     Indication: BACK PAIN
     Route: 048
     Dates: start: 20100407, end: 20100414
  10. TOPALGIC [Suspect]
     Route: 065
     Dates: start: 20100601
  11. MYSOLINE [Suspect]
     Indication: ESSENTIAL TREMOR
     Route: 048
     Dates: start: 20090101, end: 20100413
  12. THIOCOLCHICOSIDE [Suspect]
     Indication: BACK PAIN
     Route: 048
     Dates: start: 20100407, end: 20100414
  13. THIOCOLCHICOSIDE [Suspect]
     Route: 065
     Dates: start: 20100601
  14. DAFALGAN CODEINE [Suspect]
     Indication: BACK PAIN
     Route: 048
     Dates: start: 20100409, end: 20100413
  15. DAFALGAN CODEINE [Suspect]
     Route: 065
     Dates: start: 20100601
  16. LOXEN [Suspect]
     Indication: HYPERTENSION
     Route: 048
     Dates: start: 20100411, end: 20100413
  17. LOXEN [Suspect]
     Route: 065
     Dates: start: 20100601
  18. CREON [Concomitant]
     Indication: DRUG USE FOR UNKNOWN INDICATION
     Route: 048
     Dates: end: 20100414
  19. DOLIPRANE [Concomitant]
     Indication: DRUG USE FOR UNKNOWN INDICATION
     Dates: start: 20100407, end: 20100409
  20. KAYEXALATE [Concomitant]
     Indication: DRUG USE FOR UNKNOWN INDICATION
     Dates: start: 20100408, end: 20100409
  21. FORLAX [Concomitant]
     Indication: DRUG USE FOR UNKNOWN INDICATION
     Dates: start: 20100411, end: 20100417
  22. IMOVANE [Concomitant]
     Indication: DRUG USE FOR UNKNOWN INDICATION
  23. NEXIUM [Concomitant]
     Indication: DRUG USE FOR UNKNOWN INDICATION
  24. ISOPTIN SR [Concomitant]
     Indication: DRUG USE FOR UNKNOWN INDICATION
  25. MOLSIDOMINE [Concomitant]
     Indication: DRUG USE FOR UNKNOWN INDICATION
  26. NOVOMIX [Concomitant]
     Indication: DRUG USE FOR UNKNOWN INDICATION
  27. RAMIPRIL [Concomitant]
     Indication: DRUG USE FOR UNKNOWN INDICATION

REACTIONS (2)
  - CYTOLYTIC HEPATITIS [None]
  - TRANSAMINASES INCREASED [None]
